FAERS Safety Report 10013036 (Version 1)
Quarter: 2014Q1

REPORT INFORMATION
  Report Type: Report from Study
  Country: DE (occurrence: DE)
  Receive Date: 20140314
  Receipt Date: 20140314
  Transmission Date: 20141002
  Serious: Yes (Hospitalization, Other)
  Sender: FDA-Public Use
  Company Number: DE-ABBVIE-14P-062-1211513-00

PATIENT
  Age: 43 Year
  Sex: Male

DRUGS (2)
  1. KALETRA [Suspect]
     Indication: HIV INFECTION
     Dates: start: 20020420
  2. COMBIVIR [Concomitant]
     Indication: HIV INFECTION

REACTIONS (6)
  - Coronary artery disease [Unknown]
  - AIDS dementia complex [Recovering/Resolving]
  - Herpes dermatitis [Not Recovered/Not Resolved]
  - Oesophageal candidiasis [Unknown]
  - Aspartate aminotransferase increased [Unknown]
  - Alanine aminotransferase increased [Unknown]
